FAERS Safety Report 14776805 (Version 1)
Quarter: 2018Q2

REPORT INFORMATION
  Report Type: Spontaneous
  Country: AT (occurrence: AT)
  Receive Date: 20180419
  Receipt Date: 20180419
  Transmission Date: 20180711
  Serious: Yes (Other)
  Sender: FDA-Public Use
  Company Number: AT-BIOGEN-2018BI00557559

PATIENT
  Sex: Female

DRUGS (1)
  1. AVONEX [Suspect]
     Active Substance: INTERFERON BETA-1A
     Indication: MULTIPLE SCLEROSIS
     Route: 030
     Dates: start: 2008

REACTIONS (4)
  - Limb injury [Unknown]
  - Fall [Recovered/Resolved]
  - Injection site pain [Not Recovered/Not Resolved]
  - Traumatic haematoma [Unknown]

NARRATIVE: CASE EVENT DATE: 201704
